FAERS Safety Report 12501691 (Version 1)
Quarter: 2016Q2

REPORT INFORMATION
  Report Type: Spontaneous
  Country: US (occurrence: US)
  Receive Date: 20160627
  Receipt Date: 20160627
  Transmission Date: 20160815
  Serious: No
  Sender: FDA-Public Use
  Company Number: US-ALLERGAN-1649142

PATIENT
  Sex: Female
  Weight: 56.7 kg

DRUGS (1)
  1. BENTYL [Suspect]
     Active Substance: DICYCLOMINE HYDROCHLORIDE
     Indication: PRODUCT USED FOR UNKNOWN INDICATION
     Dosage: UNK UNK, UNKNOWN
     Route: 065

REACTIONS (3)
  - Drug hypersensitivity [Unknown]
  - Migraine [Unknown]
  - Dysarthria [Unknown]
